FAERS Safety Report 18265587 (Version 6)
Quarter: 2021Q1

REPORT INFORMATION
  Report Type: Report from Study
  Country: None (occurrence: US)
  Receive Date: 20200915
  Receipt Date: 20210115
  Transmission Date: 20210419
  Serious: Yes (Hospitalization, Other)
  Sender: FDA-Public Use
  Company Number: US-ABBVIE-20K-163-3563050-00

PATIENT
  Age: 81 Year
  Sex: Male
  Weight: 70.37 kg

DRUGS (8)
  1. IMBRUVICA [Suspect]
     Active Substance: IBRUTINIB
     Route: 048
  2. ZOLPIDEM TARTRATE. [Concomitant]
     Active Substance: ZOLPIDEM TARTRATE
     Indication: PRODUCT USED FOR UNKNOWN INDICATION
  3. HYDROXYZINE HCL [Concomitant]
     Active Substance: HYDROXYZINE HYDROCHLORIDE
     Indication: PRODUCT USED FOR UNKNOWN INDICATION
  4. IMBRUVICA [Suspect]
     Active Substance: IBRUTINIB
     Route: 048
  5. IMBRUVICA [Suspect]
     Active Substance: IBRUTINIB
     Route: 048
     Dates: start: 20200106
  6. IMBRUVICA [Suspect]
     Active Substance: IBRUTINIB
     Indication: CHRONIC LYMPHOCYTIC LEUKAEMIA
     Route: 048
     Dates: start: 20200721, end: 20200828
  7. IMBRUVICA [Suspect]
     Active Substance: IBRUTINIB
     Route: 048
     Dates: start: 20200910
  8. IMBRUVICA [Suspect]
     Active Substance: IBRUTINIB
     Route: 048
     Dates: start: 20200721

REACTIONS (16)
  - Feeling abnormal [Unknown]
  - Dizziness [Unknown]
  - Arthralgia [Unknown]
  - Atrial tachycardia [Unknown]
  - Arrhythmia [Unknown]
  - Splenomegaly [Unknown]
  - Oedema [Unknown]
  - Dizziness [Unknown]
  - Aphthous ulcer [Unknown]
  - Gait disturbance [Unknown]
  - Blood pressure fluctuation [Unknown]
  - Arrhythmia [Unknown]
  - Atrioventricular block first degree [Unknown]
  - Blood pressure abnormal [Unknown]
  - Rhinorrhoea [Unknown]
  - Gout [Unknown]

NARRATIVE: CASE EVENT DATE: 2020
